FAERS Safety Report 23875405 (Version 1)
Quarter: 2024Q2

REPORT INFORMATION
  Report Type: Spontaneous
  Country: BR (occurrence: BR)
  Receive Date: 20240520
  Receipt Date: 20240520
  Transmission Date: 20240716
  Serious: Yes (Other)
  Sender: FDA-Public Use
  Company Number: BR-BAXTER-2024BAX017906

PATIENT
  Age: 23 Year
  Sex: Female

DRUGS (2)
  1. IRON [Suspect]
     Active Substance: IRON
     Indication: Mineral supplementation
     Dosage: 200 MG (2 AMPOULES) DILUTED IN 500 ML OF 0.9% SALINE, IN TWO HOURS, SINGLE DOSE.
     Route: 042
     Dates: start: 20240413, end: 20240413
  2. SODIUM CHLORIDE [Suspect]
     Active Substance: SODIUM CHLORIDE
     Indication: Medication dilution
     Dosage: 500 ML OF 0.9% SALINE SOLUTION USED TO DILUTE 200 MG (2 AMPOULES) OF SUCROFER, IN TWO HOURS, SINGLE
     Route: 042
     Dates: start: 20240413, end: 20240413

REACTIONS (4)
  - Hyperaemia [Recovered/Resolved]
  - Skin plaque [Recovered/Resolved]
  - Back pain [Recovered/Resolved]
  - Product administration error [Unknown]

NARRATIVE: CASE EVENT DATE: 20240413
